FAERS Safety Report 4411063-1 (Version None)
Quarter: 2004Q2

REPORT INFORMATION
  Report Type: 
  Country: None (occurrence: None)
  Receive Date: 20040630
  Receipt Date: 20040512
  Transmission Date: 20050107
  Serious: No
  Sender: FDA-Public Use
  Company Number: 04P-163-0260512-00

PATIENT
  Age: 48 Year
  Sex: Female
  Weight: 61.2356 kg

DRUGS (11)
  1. HUMIRA [Suspect]
     Indication: RHEUMATOID ARTHRITIS
     Dosage: 40 MG, 1 IN 2 WK, SUBCUTANEOUS
     Route: 058
     Dates: start: 20040321, end: 20040511
  2. PREDNISONE [Concomitant]
  3. CELECOXIB [Concomitant]
  4. FOLIC ACID [Concomitant]
  5. IRBESARTAN [Concomitant]
  6. INSULIN [Concomitant]
  7. OMEPRAZOLE [Concomitant]
  8. GABAPENTIN [Concomitant]
  9. PROVELLA-14 [Concomitant]
  10. CETIRIZINE HCL [Concomitant]
  11. LEFLUNOMIDE [Concomitant]

REACTIONS (4)
  - INJECTION SITE PRURITUS [None]
  - INJECTION SITE VESICLES [None]
  - INJECTION SITE WARMTH [None]
  - RASH GENERALISED [None]
